FAERS Safety Report 7956227-5 (Version None)
Quarter: 2011Q4

REPORT INFORMATION
  Report Type: 
  Country: None (occurrence: None)
  Receive Date: 20111205
  Receipt Date: 20111128
  Transmission Date: 20120403
  Serious: Yes (Death, Other)
  Sender: FDA-Public Use
  Company Number: TR-BRISTOL-MYERS SQUIBB COMPANY-16264673

PATIENT
  Age: 24 Year
  Sex: Male

DRUGS (7)
  1. CISPLATIN [Suspect]
     Indication: MEDULLOBLASTOMA
  2. ETOPOSIDE [Suspect]
     Indication: MEDULLOBLASTOMA
  3. VINCRISTINE [Suspect]
     Indication: MEDULLOBLASTOMA
     Dosage: DOSAGE:  ON DAY 1
  4. PROCARBAZINE HYDROCHLORIDE [Suspect]
     Indication: MEDULLOBLASTOMA
  5. CARBOPLATIN [Suspect]
     Indication: MEDULLOBLASTOMA
  6. LOMUSTINE [Suspect]
     Indication: MEDULLOBLASTOMA
  7. CYCLOPHOSPHAMIDE [Suspect]
     Indication: MEDULLOBLASTOMA

REACTIONS (3)
  - HYPERBILIRUBINAEMIA [None]
  - NEOPLASM MALIGNANT [None]
  - PANCYTOPENIA [None]
